FAERS Safety Report 13988096 (Version 4)
Quarter: 2019Q1

REPORT INFORMATION
  Report Type: Spontaneous
  Country: JP (occurrence: JP)
  Receive Date: 20170919
  Receipt Date: 20190305
  Transmission Date: 20190417
  Serious: Yes (Hospitalization, Other)
  Sender: FDA-Public Use
  Company Number: JP-SA-2017SA170611

PATIENT
  Age: 66 Year
  Sex: Male

DRUGS (9)
  1. ELPLAT [Suspect]
     Active Substance: OXALIPLATIN
     Indication: RECTAL CANCER
     Dosage: UNK UNK,QCY
     Route: 041
     Dates: start: 20121017, end: 20121114
  2. LEVOFOLINIC ACID [Suspect]
     Active Substance: LEVOLEUCOVORIN
     Indication: RECTAL CANCER
     Dosage: UNK UNK,QD
     Route: 041
     Dates: start: 20121017, end: 20121114
  3. FLUOROURACIL. [Suspect]
     Active Substance: FLUOROURACIL
     Dosage: UNK UNK,QCY
     Route: 042
     Dates: start: 20121017, end: 20121017
  4. ELPLAT [Suspect]
     Active Substance: OXALIPLATIN
     Dosage: UNK UNK,QCY
     Route: 041
     Dates: start: 20121114, end: 20121114
  5. LEVOFOLINIC ACID [Suspect]
     Active Substance: LEVOLEUCOVORIN
     Dosage: UNK UNK,QD
     Route: 041
     Dates: start: 20121114, end: 20121114
  6. FLUOROURACIL. [Suspect]
     Active Substance: FLUOROURACIL
     Indication: RECTAL CANCER
     Dosage: UNK UNK,QCY
     Route: 040
     Dates: start: 20121017, end: 20121114
  7. FLUOROURACIL. [Suspect]
     Active Substance: FLUOROURACIL
     Dosage: UNK UNK,QCY
  8. VECTIBIX [Suspect]
     Active Substance: PANITUMUMAB
     Indication: RECTAL CANCER
     Dosage: UNK UNK,QCY
     Route: 065
     Dates: start: 20121017, end: 20121017
  9. VECTIBIX [Suspect]
     Active Substance: PANITUMUMAB
     Dosage: UNK UNK,QCY
     Route: 065

REACTIONS (8)
  - Dysphagia [Recovering/Resolving]
  - Oesophageal stenosis [Recovering/Resolving]
  - Oesophagitis [Recovering/Resolving]
  - Malaise [Recovering/Resolving]
  - Large intestinal stenosis [Recovering/Resolving]
  - Abdominal pain upper [Recovering/Resolving]
  - Decreased appetite [Recovering/Resolving]
  - Oesophageal carcinoma [Recovering/Resolving]

NARRATIVE: CASE EVENT DATE: 20121201
